FAERS Safety Report 8611830-4 (Version None)
Quarter: 2012Q3

REPORT INFORMATION
  Report Type: 
  Country: None (occurrence: None)
  Receive Date: 20120822
  Receipt Date: 20120813
  Transmission Date: 20120928
  Serious: Yes (Hospitalization)
  Sender: FDA-Public Use
  Company Number: PL-JNJFOC-20120806174

PATIENT
  Age: 60 Year
  Sex: Female
  Weight: 64 kg

DRUGS (2)
  1. RISPERIDONE [Suspect]
     Indication: SCHIZOPHRENIA, PARANOID TYPE
     Route: 030
     Dates: start: 20100101, end: 20120601
  2. RISPERIDONE [Suspect]
     Route: 030
     Dates: start: 20120601

REACTIONS (1)
  - PULMONARY HYPERTENSION [None]
